FAERS Safety Report 5963553-8 (Version None)
Quarter: 2008Q4

REPORT INFORMATION
  Report Type: 
  Country: None (occurrence: None)
  Receive Date: 20081124
  Receipt Date: 20080313
  Transmission Date: 20090506
  Serious: No
  Sender: FDA-Public Use
  Company Number: US-BAYER-200811279BCC

PATIENT
  Sex: Female
  Weight: 73 kg

DRUGS (4)
  1. ALEVE (CAPLET) [Suspect]
     Indication: MYALGIA
     Dosage: TOTAL DAILY DOSE: 440 MG  UNIT DOSE: 220 MG
     Route: 048
     Dates: start: 20080201
  2. GLUCOSAMINE AND CHONDROITIN [Concomitant]
  3. ALTOPREV [Concomitant]
  4. ONE-A-DAY WOMENS [Concomitant]

REACTIONS (2)
  - FEELING ABNORMAL [None]
  - SOMNOLENCE [None]
